FAERS Safety Report 25778286 (Version 4)
Quarter: 2025Q4

REPORT INFORMATION
  Report Type: Spontaneous
  Country: EU (occurrence: EU)
  Receive Date: 20250909
  Receipt Date: 20251004
  Transmission Date: 20260117
  Serious: Yes (Other)
  Sender: AUROBINDO
  Company Number: EU-SANDOZ-SDZ2025FR053145

PATIENT
  Age: 39 Year
  Sex: Male

DRUGS (7)
  1. MONTELUKAST SODIUM [Suspect]
     Active Substance: MONTELUKAST SODIUM
     Indication: Product used for unknown indication
     Dosage: 10 MG
     Route: 048
  2. MOMETASONE FUROATE [Suspect]
     Active Substance: MOMETASONE FUROATE
     Indication: Product used for unknown indication
     Dosage: 1 PER 50MG BINDER(2 TO 6 PER BINDER)
  3. BILASTINE [Suspect]
     Active Substance: BILASTINE
     Indication: Product used for unknown indication
     Dosage: 20 MILLIGRAM, ONCE A DAY (20 MG,1 AT NIGHT)
     Route: 048
     Dates: start: 2021
  4. ERELZI [Suspect]
     Active Substance: ETANERCEPT-SZZS
     Indication: Polyarthritis
     Dosage: 50 MILLIGRAM, EVERY WEEK
     Route: 058
  5. ERELZI [Suspect]
     Active Substance: ETANERCEPT-SZZS
     Dosage: 50 MILLIGRAM, EVERY WEEK (1 INJECTION WITHIN 7 DAYS )
     Route: 058
     Dates: start: 20250429
  6. INNOVAIR [Suspect]
     Active Substance: BECLOMETHASONE DIPROPIONATE\FORMOTEROL
     Indication: Product used for unknown indication
     Dosage: 100 MILLIGRAM, TWO TIMES A DAY (2 PUFFS MORNING AND EVENING)
     Dates: start: 2017
  7. BECLOMETHASONE DIPROPIONATE\FORMOTEROL FUMARATE\GLYCOPYRROLATE [Suspect]
     Active Substance: BECLOMETHASONE DIPROPIONATE\FORMOTEROL FUMARATE\GLYCOPYRROLATE
     Indication: Product used for unknown indication
     Dosage: 100 MILLIGRAM (100 MG,2 PUFFS MORNING AND EVENING)
     Route: 065
     Dates: start: 2017

REACTIONS (4)
  - Haematoma [Unknown]
  - Injection site pain [Unknown]
  - Injection site haematoma [Unknown]
  - Product availability issue [Unknown]
